FAERS Safety Report 10605778 (Version 3)
Quarter: 2014Q4

REPORT INFORMATION
  Report Type: Spontaneous
  Country: JP (occurrence: JP)
  Receive Date: 20141125
  Receipt Date: 20141230
  Transmission Date: 20150529
  Serious: Yes (Hospitalization)
  Sender: FDA-Public Use
  Company Number: JP-009507513-1411JPN010491

PATIENT
  Age: 80 Year

DRUGS (5)
  1. JANUVIA [Suspect]
     Active Substance: SITAGLIPTIN PHOSPHATE
     Indication: DIABETES MELLITUS
     Dosage: 50 MG, DAILY DOSAGE UNKNOWN; A LONG TERM USE
     Route: 048
  2. GASTER [Concomitant]
     Active Substance: FAMOTIDINE
     Dosage: POR, DAILY DOSAGE UNKNOWN; A LONG TERM USE
     Route: 048
  3. SENNA [Concomitant]
     Active Substance: SENNA LEAF\SENNOSIDES\SENNOSIDES A AND B
     Dosage: POR, DAILY DOSAGE UNKNOWN
     Route: 048
  4. PRAVASTATIN SODIUM. [Concomitant]
     Active Substance: PRAVASTATIN SODIUM
     Dosage: DAILY DOSAGE UNKNOWN; A LONG TERM USE
     Route: 048
  5. DAI-KENCHU-TO [Concomitant]
     Active Substance: MALTOSE
     Dosage: POR, DAILY DOSAGE UNKNOWN
     Route: 048

REACTIONS (1)
  - Pernicious anaemia [Recovered/Resolved]

NARRATIVE: CASE EVENT DATE: 201411
